FAERS Safety Report 5504764-5 (Version None)
Quarter: 2007Q4

REPORT INFORMATION
  Report Type: 
  Country: None (occurrence: None)
  Receive Date: 20071031
  Receipt Date: 20071031
  Transmission Date: 20080405
  Serious: No
  Sender: FDA-Public Use
  Company Number: None

PATIENT
  Age: 44 Year
  Sex: Female
  Weight: 61.2356 kg

DRUGS (3)
  1. AFRIN [Suspect]
     Indication: HYPERSENSITIVITY
     Dosage: PUFFS EVERY 12 HOURS NOSE
     Route: 045
     Dates: start: 20041103, end: 20041105
  2. AFRIN [Suspect]
     Indication: NASOPHARYNGITIS
     Dosage: PUFFS EVERY 12 HOURS NOSE
     Route: 045
     Dates: start: 20041103, end: 20041105
  3. AFRIN [Suspect]
     Indication: SINUS DISORDER
     Dosage: PUFFS EVERY 12 HOURS NOSE
     Route: 045
     Dates: start: 20041103, end: 20041105

REACTIONS (7)
  - ABNORMAL BEHAVIOUR [None]
  - ECONOMIC PROBLEM [None]
  - EMOTIONAL DISTRESS [None]
  - FEAR [None]
  - STRESS [None]
  - THINKING ABNORMAL [None]
  - VOLUNTARY REDUNDANCY [None]
